FAERS Safety Report 4606076-0 (Version None)
Quarter: 2005Q1

REPORT INFORMATION
  Report Type: 
  Country: None (occurrence: None)
  Receive Date: 20050311
  Receipt Date: 20050215
  Transmission Date: 20050727
  Serious: Yes (Hospitalization)
  Sender: FDA-Public Use
  Company Number: DE-BRISTOL-MYERS SQUIBB COMPANY-12862488

PATIENT
  Age: 29 Year
  Sex: Male

DRUGS (8)
  1. TAXOL [Suspect]
     Indication: GERM CELL CANCER
     Route: 042
     Dates: start: 20050128, end: 20050128
  2. CISPLATIN [Suspect]
     Indication: GERM CELL CANCER
     Dosage: TX START 28-JAN-2005
     Route: 042
     Dates: start: 20050201, end: 20050201
  3. BLEOMYCIN SULFATE [Suspect]
     Indication: GERM CELL CANCER
     Route: 042
     Dates: start: 20050128, end: 20050128
  4. ETOPOSIDE [Suspect]
     Indication: GERM CELL CANCER
     Dosage: TX START 28-JAN-2005
     Route: 042
     Dates: start: 20050201, end: 20050201
  5. RANITIDINE [Concomitant]
     Dates: start: 20050129, end: 20050129
  6. TAVEGIL [Concomitant]
     Dates: start: 20050129, end: 20050129
  7. DEXAMETHASONE [Concomitant]
     Dates: start: 20050129, end: 20050209
  8. NAVOBAN [Concomitant]
     Dates: start: 20050129, end: 20050206

REACTIONS (1)
  - FEBRILE NEUTROPENIA [None]
